FAERS Safety Report 25238952 (Version 1)
Quarter: 2025Q2

REPORT INFORMATION
  Report Type: Spontaneous
  Country: SE (occurrence: SE)
  Receive Date: 20250425
  Receipt Date: 20250425
  Transmission Date: 20250717
  Serious: Yes (Death, Life-Threatening, Disabling)
  Sender: ACCORD
  Company Number: None

PATIENT
  Age: 10 Year
  Sex: Female
  Weight: 64 kg

DRUGS (2)
  1. METHOTREXATE [Suspect]
     Active Substance: METHOTREXATE
     Indication: Acute lymphocytic leukaemia
     Dates: start: 20241016, end: 20241106
  2. VINCRISTINE [Suspect]
     Active Substance: VINCRISTINE
     Indication: Acute lymphocytic leukaemia
     Dates: start: 20241016, end: 20241106

REACTIONS (8)
  - Renal impairment [Fatal]
  - Cerebral haemorrhage [Fatal]
  - Bedridden [Fatal]
  - Volvulus [Fatal]
  - Pneumonia [Fatal]
  - Wheelchair user [Fatal]
  - Dialysis [Fatal]
  - Gastroenteritis Escherichia coli [Fatal]

NARRATIVE: CASE EVENT DATE: 20241101
